FAERS Safety Report 4955709-8 (Version None)
Quarter: 2006Q1

REPORT INFORMATION
  Report Type: 
  Country: None (occurrence: None)
  Receive Date: 20060328
  Receipt Date: 20060227
  Transmission Date: 20060701
  Serious: Yes (Life-Threatening)
  Sender: FDA-Public Use
  Company Number: TR-AVENTIS-200612173GDDC

PATIENT
  Age: 27 Year
  Sex: Male

DRUGS (3)
  1. KETEK [Suspect]
     Indication: UPPER RESPIRATORY TRACT INFECTION
     Dosage: DOSE: UNK
     Route: 048
  2. COUGH AND COLD PREPARATIONS [Concomitant]
     Indication: ANALGESIC EFFECT
     Dosage: DOSE: UNK
     Route: 048
  3. COUGH AND COLD PREPARATIONS [Concomitant]
     Indication: PYREXIA
     Dosage: DOSE: UNK
     Route: 048

REACTIONS (3)
  - BLOOD PH DECREASED [None]
  - LOSS OF CONSCIOUSNESS [None]
  - RESPIRATORY DISTRESS [None]
